FAERS Safety Report 22531541 (Version 1)
Quarter: 2023Q2

REPORT INFORMATION
  Report Type: Report from Study
  Country: CN (occurrence: CN)
  Receive Date: 20230607
  Receipt Date: 20230607
  Transmission Date: 20230722
  Serious: Yes (Life-Threatening, Hospitalization)
  Sender: FDA-Public Use
  Company Number: CN-BEIGENE-BGN-2023-005158

PATIENT
  Age: 63 Year
  Sex: Female
  Weight: 81.2 kg

DRUGS (11)
  1. TISLELIZUMAB [Suspect]
     Active Substance: TISLELIZUMAB
     Indication: Non-small cell lung cancer
     Dosage: 200 MG, Q3W
     Route: 042
     Dates: start: 20211109, end: 20230601
  2. OCIPERLIMAB [Suspect]
     Active Substance: OCIPERLIMAB
     Indication: Non-small cell lung cancer
     Dosage: 1800 MG, Q3W
     Route: 042
     Dates: start: 20211109, end: 20230601
  3. PEMETREXED [Suspect]
     Active Substance: PEMETREXED
     Indication: Non-small cell lung cancer
     Dosage: 500 MG/M2, Q3W
     Route: 042
     Dates: start: 20211109, end: 20230601
  4. CARBOPLATIN [Suspect]
     Active Substance: CARBOPLATIN
     Indication: Non-small cell lung cancer
     Dosage: 750 MG, Q3W
     Route: 042
     Dates: start: 20211109, end: 20220209
  5. IBANDRONATE SODIUM [Concomitant]
     Active Substance: IBANDRONATE SODIUM
     Indication: Metastases to bone
     Dosage: 6 MG, QD
     Route: 065
     Dates: start: 20230427, end: 20230427
  6. ONDANSETRON HYDROCHLORIDE [Concomitant]
     Active Substance: ONDANSETRON HYDROCHLORIDE
     Indication: Prophylaxis of nausea and vomiting
     Dosage: 8 MG, BID
     Route: 065
     Dates: start: 20230427, end: 20230427
  7. DEXAMETHASONE ACETATE [Concomitant]
     Active Substance: DEXAMETHASONE ACETATE
     Indication: Premedication
     Dosage: 3.75 MG, BID
     Route: 065
     Dates: start: 20230426, end: 20230427
  8. OMEPRAZOLE SODIUM [Concomitant]
     Active Substance: OMEPRAZOLE SODIUM
     Indication: Gastrointestinal disorder prophylaxis
     Dosage: 40 MG, QD
     Route: 065
     Dates: start: 20230427, end: 20230427
  9. PREDNISOLONE ACETATE [Concomitant]
     Active Substance: PREDNISOLONE ACETATE
     Indication: Rash
     Dosage: 15 MG, QD (5MG IN MORNING, 10MG IN EVENING)
     Route: 065
     Dates: start: 20221205
  10. METHYLCOBALAMIN [Concomitant]
     Active Substance: METHYLCOBALAMIN
     Indication: Rash
     Dosage: 0.5 MG, TID
     Route: 065
     Dates: start: 20221126
  11. CYPROHEPTADINE HYDROCHLORIDE [Concomitant]
     Active Substance: CYPROHEPTADINE HYDROCHLORIDE
     Indication: Rash
     Dosage: 2 MG, TID
     Route: 065
     Dates: start: 20221126

REACTIONS (1)
  - Meningitis [Not Recovered/Not Resolved]

NARRATIVE: CASE EVENT DATE: 20230529
